FAERS Safety Report 23862268 (Version 2)
Quarter: 2024Q2

REPORT INFORMATION
  Report Type: Spontaneous
  Country: US (occurrence: US)
  Receive Date: 20240516
  Receipt Date: 20240521
  Transmission Date: 20240715
  Serious: Yes (Other)
  Sender: FDA-Public Use
  Company Number: US-TEVA-VS-3198162

PATIENT
  Age: 20 Year
  Sex: Male

DRUGS (1)
  1. AUSTEDO [Suspect]
     Active Substance: DEUTETRABENAZINE
     Indication: Tardive dyskinesia
     Route: 065
     Dates: start: 202404, end: 20240507

REACTIONS (4)
  - Aggression [Not Recovered/Not Resolved]
  - Contusion [Unknown]
  - Drug ineffective [Unknown]
  - Self-destructive behaviour [Not Recovered/Not Resolved]

NARRATIVE: CASE EVENT DATE: 20240101
